FAERS Safety Report 8287026-5 (Version None)
Quarter: 2012Q2

REPORT INFORMATION
  Report Type: 
  Country: None (occurrence: None)
  Receive Date: 20120416
  Receipt Date: 20120410
  Transmission Date: 20120825
  Serious: Yes (Death, Hospitalization)
  Sender: FDA-Public Use
  Company Number: CH-SANOFI-AVENTIS-2011SA081454

PATIENT
  Age: 53 Year
  Sex: Male
  Weight: 81 kg

DRUGS (9)
  1. DOCETAXEL [Suspect]
     Indication: NON-SMALL CELL LUNG CANCER
     Dosage: DAY 1 OF 21 DAY CYCLE
     Route: 041
     Dates: start: 20110727, end: 20110727
  2. DEXAMETHASONE [Concomitant]
     Indication: PREMEDICATION
     Dates: start: 20111019, end: 20111127
  3. DEXAMETHASONE [Concomitant]
     Dates: start: 20111019, end: 20111127
  4. CLEMASTINE [Concomitant]
     Indication: PREMEDICATION
     Dates: start: 20111020, end: 20111020
  5. BLINDED THERAPY [Suspect]
     Indication: NON-SMALL CELL LUNG CANCER
     Dosage: DAY 1 OF 21 DAY CYCLE
     Route: 042
     Dates: start: 20110727, end: 20110727
  6. BLINDED THERAPY [Suspect]
     Dosage: DAY 1 OF 21 DAY CYCLE
     Route: 042
     Dates: start: 20111020, end: 20111020
  7. DOCETAXEL [Suspect]
     Dosage: DAY 1 OF 21 DAY CYCLE
     Route: 041
     Dates: start: 20111020, end: 20111020
  8. ASPIRIN [Concomitant]
     Indication: MYOCARDIAL INFARCTION
     Dates: start: 20100301
  9. PANTOPRAZOLE [Concomitant]
     Indication: PROPHYLAXIS
     Dates: start: 20100301

REACTIONS (8)
  - METASTASES TO CENTRAL NERVOUS SYSTEM [None]
  - CONFUSIONAL STATE [None]
  - FALL [None]
  - NEOPLASM PROGRESSION [None]
  - GAIT DISTURBANCE [None]
  - HYPONATRAEMIA [None]
  - STUPOR [None]
  - CRANIOCEREBRAL INJURY [None]
